FAERS Safety Report 8591204-5 (Version None)
Quarter: 2012Q3

REPORT INFORMATION
  Report Type: 
  Country: None (occurrence: None)
  Receive Date: 20120813
  Receipt Date: 20120806
  Transmission Date: 20120928
  Serious: Yes (Congenital Anomaly, Other)
  Sender: FDA-Public Use
  Company Number: FR-RB-043243-12

PATIENT
  Sex: Male
  Weight: 3.2 kg

DRUGS (1)
  1. SUBUTEX [Suspect]
     Indication: PRODUCT USED FOR UNKNOWN INDICATION
     Dosage: DOSING DETAILS UNKNOWN
     Route: 064

REACTIONS (4)
  - HYGROMA COLLI [None]
  - VENTRICULAR SEPTAL DEFECT [None]
  - SINGLE UMBILICAL ARTERY [None]
  - FOETAL EXPOSURE DURING PREGNANCY [None]
